FAERS Safety Report 21816042 (Version 1)
Quarter: 2023Q1

REPORT INFORMATION
  Report Type: Spontaneous
  Country: US (occurrence: None)
  Receive Date: 20230103
  Receipt Date: 20230103
  Transmission Date: 20230417
  Serious: Yes (Death)
  Sender: FDA-Public Use
  Company Number: None

PATIENT
  Age: 84 Year
  Sex: Female
  Weight: 74 kg

DRUGS (1)
  1. OMNIPAQUE [Suspect]
     Active Substance: IOHEXOL
     Indication: Computerised tomogram
     Dosage: OTHER FREQUENCY : ONCE, OTHER;?
     Route: 042
     Dates: start: 20221215, end: 20221215

REACTIONS (10)
  - Feeling hot [None]
  - Pyrexia [None]
  - Abdominal pain [None]
  - Confusional state [None]
  - Tremor [None]
  - Dyskinesia [None]
  - Unresponsive to stimuli [None]
  - Apnoea [None]
  - Pulse absent [None]
  - Ventricular tachycardia [None]

NARRATIVE: CASE EVENT DATE: 20221215
